FAERS Safety Report 20674361 (Version 1)
Quarter: 2022Q2

REPORT INFORMATION
  Report Type: Spontaneous
  Country: SE (occurrence: SE)
  Receive Date: 20220405
  Receipt Date: 20220405
  Transmission Date: 20220721
  Serious: Yes (Other)
  Sender: FDA-Public Use
  Company Number: None

PATIENT
  Age: 48 Year
  Sex: Female

DRUGS (5)
  1. MIRTAZAPINE [Suspect]
     Active Substance: MIRTAZAPINE
     Dosage: UNIT DOSE: 15 MG, STRENGTH: 15 MG, FREQUENCY TIME 1 DAY, DURATION 160 DAYS
     Route: 048
     Dates: start: 20210825, end: 20220201
  2. CYANOCOBALAMIN [Concomitant]
     Active Substance: CYANOCOBALAMIN
     Dosage: UNIT DOSE: 1 MG, STRENGTH: 1 MG, FREQUENCY TIME 1 DAY
     Route: 048
  3. Circadi [Concomitant]
     Dosage: UNIT DOSE: 2 MG, STRENGTH: 2 MG, FREQUENCY TIME 1 DAY
     Route: 048
  4. VICTOZA [Concomitant]
     Active Substance: LIRAGLUTIDE
     Dosage: 2.4 MILLIGRAM DAILY; 1.8 MG IN THE MORNING +0.6 MG IN THE EVENING,
     Route: 030
  5. GABAPENTIN [Concomitant]
     Active Substance: GABAPENTIN
     Dosage: 400 MILLIGRAM DAILY; 100 MG 2+2+0+0, UNIT DOSE: 400 MG,
     Route: 048

REACTIONS (2)
  - Postprandial hypoglycaemia [Recovered/Resolved]
  - Condition aggravated [Recovered/Resolved]

NARRATIVE: CASE EVENT DATE: 20210825
